FAERS Safety Report 9936223 (Version 1)
Quarter: 2014Q1

REPORT INFORMATION
  Report Type: Spontaneous
  Country: US (occurrence: US)
  Receive Date: 20140228
  Receipt Date: 20140228
  Transmission Date: 20141002
  Serious: No
  Sender: FDA-Public Use
  Company Number: US-AMGEN-USASP2013090969

PATIENT
  Age: 57 Year
  Sex: Male

DRUGS (2)
  1. ENBREL [Suspect]
     Indication: RHEUMATOID ARTHRITIS
     Dosage: 50 MG, QWK
     Route: 065
     Dates: start: 20130628, end: 201311
  2. ORENCIA [Concomitant]
     Dosage: 1.25, QWK
     Dates: start: 201311

REACTIONS (2)
  - Drug effect incomplete [Not Recovered/Not Resolved]
  - Local swelling [Not Recovered/Not Resolved]
